FAERS Safety Report 10103602 (Version 2)
Quarter: 2014Q2

REPORT INFORMATION
  Report Type: Other
  Country: US (occurrence: US)
  Receive Date: 20140424
  Receipt Date: 20140609
  Transmission Date: 20141212
  Serious: Yes (Other)
  Sender: FDA-Public Use
  Company Number: US-ACORDA-ACO_102952_2014

PATIENT
  Sex: Female
  Weight: 63.39 kg

DRUGS (5)
  1. AMPYRA [Suspect]
     Indication: GAIT DISTURBANCE
     Dosage: 10 MG, Q 12 HRS
     Route: 048
     Dates: start: 201312
  2. GILENYA [Concomitant]
     Indication: PRODUCT USED FOR UNKNOWN INDICATION
     Dosage: UNK
  3. GABAPENTIN [Concomitant]
     Indication: PRODUCT USED FOR UNKNOWN INDICATION
     Dosage: 100 MG, PRN
  4. GABAPENTIN [Concomitant]
     Dosage: 300 MG, PRN
  5. VITAMINS [Concomitant]
     Indication: PRODUCT USED FOR UNKNOWN INDICATION
     Dosage: UNK

REACTIONS (5)
  - Vascular operation [Unknown]
  - Limb discomfort [Recovered/Resolved]
  - Weight fluctuation [Not Recovered/Not Resolved]
  - Gait disturbance [Recovered/Resolved]
  - Inappropriate schedule of drug administration [Unknown]
